FAERS Safety Report 7067437-6 (Version None)
Quarter: 2010Q4

REPORT INFORMATION
  Report Type: 
  Country: None (occurrence: None)
  Receive Date: 20101026
  Receipt Date: 20101026
  Transmission Date: 20110411
  Serious: Yes (Other)
  Sender: FDA-Public Use
  Company Number: None

PATIENT
  Sex: Female
  Weight: 89.8122 kg

DRUGS (7)
  1. PROLIA [Suspect]
     Indication: OSTEOPOROSIS
     Dosage: 60 MG EVERY 6 MONTHS SQ
     Route: 058
     Dates: start: 20100908, end: 20100908
  2. DIOVAN HCT [Concomitant]
  3. VITAMIN D [Concomitant]
  4. POTASSIUM CHLORIDE [Concomitant]
  5. OMEPRAZOLE [Concomitant]
  6. TESTOSTERONE [Concomitant]
  7. LEVOTHYROXINE [Concomitant]

REACTIONS (2)
  - ARTHRALGIA [None]
  - PAIN IN JAW [None]
